FAERS Safety Report 23723733 (Version 4)
Quarter: 2024Q4

REPORT INFORMATION
  Report Type: Spontaneous
  Country: CA (occurrence: CA)
  Receive Date: 20240409
  Receipt Date: 20241025
  Transmission Date: 20250114
  Serious: Yes (Other)
  Sender: PFIZER
  Company Number: CA-PFIZER INC-202400079777

PATIENT
  Age: 56 Year
  Sex: Male

DRUGS (3)
  1. ABRILADA [Suspect]
     Active Substance: ADALIMUMAB-AFZB
     Indication: Crohn^s disease
     Dosage: 1 DF,WEEK0:160MG, WEEK2:80MG THEN 40 MG EVERY OTHER WEEK
     Route: 058
     Dates: start: 20231228
  2. ABRILADA [Suspect]
     Active Substance: ADALIMUMAB-AFZB
     Dosage: 40 MG , EVERY 2 WEEKS
     Route: 058
  3. ABRILADA [Suspect]
     Active Substance: ADALIMUMAB-AFZB
     Dosage: 1 DF,  WEEK0:160MG, WEEK2:80MG THEN 40 MG EVERY OTHER WEEK
     Route: 058
     Dates: start: 2024

REACTIONS (2)
  - Renal stone removal [Recovering/Resolving]
  - Traumatic lung injury [Unknown]
